FAERS Safety Report 16435346 (Version 1)
Quarter: 2019Q2

REPORT INFORMATION
  Report Type: Spontaneous
  Country: US (occurrence: US)
  Receive Date: 20190614
  Receipt Date: 20190614
  Transmission Date: 20190711
  Serious: Yes (Other)
  Sender: FDA-Public Use
  Company Number: US-MYLANLABS-2019M1055843

PATIENT
  Age: 75 Year
  Sex: Female
  Weight: 73 kg

DRUGS (1)
  1. LEVOTHYROXINE SODIUM TABLETS, USP [Suspect]
     Active Substance: LEVOTHYROXINE SODIUM
     Indication: PRODUCT USED FOR UNKNOWN INDICATION
     Dosage: 50 MICROGRAM, QD
     Route: 048
     Dates: start: 201810

REACTIONS (6)
  - Productive cough [Unknown]
  - Cough [Not Recovered/Not Resolved]
  - Pneumonia [Recovered/Resolved]
  - Choking [Unknown]
  - Reaction to excipient [Unknown]
  - Asthma [Unknown]

NARRATIVE: CASE EVENT DATE: 2019
